FAERS Safety Report 19225369 (Version 4)
Quarter: 2021Q2

REPORT INFORMATION
  Report Type: Spontaneous
  Country: HU (occurrence: HU)
  Receive Date: 20210506
  Receipt Date: 20210602
  Transmission Date: 20210717
  Serious: Yes (Other)
  Sender: FDA-Public Use
  Company Number: HU-ROCHE-2822278

PATIENT
  Age: 53 Year
  Sex: Male

DRUGS (1)
  1. RIVOTRIL [Suspect]
     Active Substance: CLONAZEPAM
     Indication: EPILEPSY
     Dosage: 0.5 MG, 50X
     Route: 048

REACTIONS (6)
  - Tooth development disorder [Recovered/Resolved]
  - Drug ineffective [Unknown]
  - Product storage error [Unknown]
  - Suspected counterfeit product [Unknown]
  - Contusion [Recovered/Resolved]
  - Generalised tonic-clonic seizure [Recovered/Resolved]

NARRATIVE: CASE EVENT DATE: 2020
